FAERS Safety Report 10264389 (Version 1)
Quarter: 2014Q2

REPORT INFORMATION
  Report Type: Spontaneous
  Country: CN (occurrence: CN)
  Receive Date: 20140627
  Receipt Date: 20140627
  Transmission Date: 20141212
  Serious: Yes (Other)
  Sender: FDA-Public Use
  Company Number: CN-ROCHE-1423002

PATIENT
  Age: 55 Year
  Sex: Male
  Weight: 66 kg

DRUGS (2)
  1. RITUXIMAB [Suspect]
     Indication: LYMPHOMA
     Route: 041
     Dates: start: 20130116, end: 20130116
  2. SODIUM CHLORIDE [Concomitant]
     Route: 041
     Dates: start: 20130116, end: 20130116

REACTIONS (3)
  - Hepatic function abnormal [Recovered/Resolved]
  - Chills [Recovering/Resolving]
  - Blood pressure increased [Unknown]
